FAERS Safety Report 8317686-1 (Version None)
Quarter: 2012Q2

REPORT INFORMATION
  Report Type: 
  Country: None (occurrence: None)
  Receive Date: 20120427
  Receipt Date: 20090707
  Transmission Date: 20120825
  Serious: No
  Sender: FDA-Public Use
  Company Number: US-TEVA-2009008237

PATIENT
  Sex: Male
  Weight: 94.432 kg

DRUGS (1)
  1. NUVIGIL [Suspect]
     Indication: SLEEP APNOEA SYNDROME
     Dosage: 250 MILLIGRAM;
     Route: 048
     Dates: start: 20090705, end: 20090707

REACTIONS (3)
  - INSOMNIA [None]
  - ANXIETY [None]
  - LOGORRHOEA [None]
